FAERS Safety Report 21943816 (Version 1)
Quarter: 2023Q1

REPORT INFORMATION
  Report Type: Spontaneous
  Country: US (occurrence: None)
  Receive Date: 20230201
  Receipt Date: 20230201
  Transmission Date: 20230418
  Serious: No
  Sender: FDA-Public Use
  Company Number: None

PATIENT
  Sex: Female

DRUGS (1)
  1. ENBREL [Suspect]
     Active Substance: ETANERCEPT
     Indication: Rheumatoid arthritis
     Dosage: 25MG TWO TIMES PER WEEK SUBCUTANEOUS
     Route: 058
     Dates: start: 20190718

REACTIONS (4)
  - Drug ineffective [None]
  - Breakthrough pain [None]
  - Arthralgia [None]
  - Swelling [None]
